FAERS Safety Report 7931054-3 (Version None)
Quarter: 2011Q4

REPORT INFORMATION
  Report Type: 
  Country: None (occurrence: None)
  Receive Date: 20111121
  Receipt Date: 20111114
  Transmission Date: 20120403
  Serious: Yes (Other)
  Sender: FDA-Public Use
  Company Number: US-CELGENEUS-163-21880-11072599

PATIENT
  Sex: Female
  Weight: 89.438 kg

DRUGS (24)
  1. FUROSEMIDE [Concomitant]
     Indication: OEDEMA
     Dosage: 40 MILLIGRAM
     Route: 048
  2. CORTISONE + MAX [Concomitant]
     Dosage: 1 PERCENT
     Route: 065
  3. ASPIRIN [Concomitant]
     Indication: THROMBOSIS PROPHYLAXIS
     Dosage: 81 MILLIGRAM
     Route: 048
  4. GLUCOSAMINE MSM [Concomitant]
     Dosage: 220 MILLIGRAM
     Route: 048
  5. ASPIRIN [Concomitant]
     Dosage: 325 MILLIGRAM
     Route: 048
  6. TUMS E-X [Concomitant]
     Dosage: 750 MILLIGRAM
     Route: 048
  7. GLUCOSAMINE MSM [Concomitant]
     Dosage: 200 MILLIGRAM
     Route: 048
  8. GLUCOSAMINE MSM [Concomitant]
     Dosage: 200 MILLIGRAM
     Route: 048
  9. REVLIMID [Suspect]
     Dosage: 15 MILLIGRAM
     Route: 048
     Dates: start: 20100812, end: 20101201
  10. REVLIMID [Suspect]
     Dosage: 15 MILLIGRAM
     Route: 048
     Dates: start: 20110701, end: 20110720
  11. AMLODIPINE BESYLATE [Concomitant]
     Indication: HYPERTENSION
     Dosage: 10 MILLIGRAM
     Route: 048
  12. AMLODIPINE BESYLATE [Concomitant]
     Dosage: 5 MILLIGRAM
     Route: 048
  13. BYSTOLIC [Concomitant]
     Indication: HYPERTENSION
     Dosage: 2.5 MILLIGRAM
     Route: 048
  14. CENTRUM SILVER [Concomitant]
     Route: 048
  15. PREVACID [Concomitant]
     Dosage: 30 MILLIGRAM
     Route: 048
  16. SIMVASTATIN [Concomitant]
     Dosage: 40 MILLIGRAM
     Route: 048
  17. SIMVASTATIN [Concomitant]
     Dosage: 10 MILLIGRAM
     Route: 048
  18. REVLIMID [Suspect]
     Dosage: 15 MILLIGRAM
     Route: 048
     Dates: start: 20110501, end: 20110627
  19. POTASSIUM CHLORIDE [Concomitant]
     Dosage: 10 MILLIEQUIVALENTS
     Route: 048
  20. DEXAMETHASONE [Concomitant]
     Dosage: 40 MILLIGRAM
     Route: 048
  21. CLARITIN [Concomitant]
     Route: 065
  22. MULTI-VITAMINS [Concomitant]
     Route: 065
  23. REVLIMID [Suspect]
     Dosage: 10 MILLIGRAM
     Route: 048
     Dates: start: 20110901
  24. NITROGLYCERIN [Concomitant]
     Indication: CHEST PAIN
     Dosage: 4 MILLIGRAM
     Route: 048

REACTIONS (2)
  - MYELODYSPLASTIC SYNDROME [None]
  - PANCYTOPENIA [None]
